FAERS Safety Report 8436779-1 (Version None)
Quarter: 2012Q2

REPORT INFORMATION
  Report Type: 
  Country: None (occurrence: None)
  Receive Date: 20120614
  Receipt Date: 20120605
  Transmission Date: 20120825
  Serious: Yes (Other)
  Sender: FDA-Public Use
  Company Number: US-ASTRAZENECA-2012SE38055

PATIENT
  Age: 54 Year
  Sex: Female

DRUGS (6)
  1. TOPROL-XL [Suspect]
     Route: 048
  2. LISINOPRIL [Suspect]
     Route: 048
  3. MELOXICAN [Concomitant]
  4. BLOOD PRESSURE MEDS [Concomitant]
  5. ANTIDEPRESSANT [Concomitant]
  6. SYMBICORT [Suspect]
     Route: 055

REACTIONS (2)
  - JOINT INJURY [None]
  - RIB FRACTURE [None]
